FAERS Safety Report 8484018-8 (Version None)
Quarter: 2012Q2

REPORT INFORMATION
  Report Type: 
  Country: None (occurrence: None)
  Receive Date: 20120627
  Receipt Date: 20120627
  Transmission Date: 20120825
  Serious: Yes (Disabling)
  Sender: FDA-Public Use
  Company Number: None

PATIENT
  Age: 47 Year
  Sex: Male
  Weight: 68.9467 kg

DRUGS (4)
  1. VITAMIN B6 [Concomitant]
  2. ISONIAZID [Concomitant]
  3. COMPLERA [Suspect]
     Indication: HIV INFECTION
     Dates: start: 20111001, end: 20120328
  4. COMPLERA [Suspect]
     Indication: HIV INFECTION
     Dates: start: 20110428, end: 20111001

REACTIONS (5)
  - CONSTIPATION [None]
  - HYDRONEPHROSIS [None]
  - TREATMENT NONCOMPLIANCE [None]
  - DRUG ADMINISTRATION ERROR [None]
  - RENAL IMPAIRMENT [None]
